FAERS Safety Report 22661540 (Version 1)
Quarter: 2023Q2

REPORT INFORMATION
  Report Type: Report from Study
  Country: IT (occurrence: IT)
  Receive Date: 20230630
  Receipt Date: 20230630
  Transmission Date: 20230722
  Serious: Yes (Hospitalization)
  Sender: FDA-Public Use
  Company Number: None

PATIENT
  Age: 73 Year
  Sex: Female

DRUGS (3)
  1. ZIRABEV [Suspect]
     Active Substance: BEVACIZUMAB-BVZR
     Indication: Rectal cancer
     Dosage: 345 MG IV IN 100 CC OF NACL OVER 30 MIN
     Route: 042
     Dates: start: 20230405, end: 20230405
  2. FLUOROURACIL [Suspect]
     Active Substance: FLUOROURACIL
     Indication: Rectal cancer
     Dosage: FLUOROURACIL 320 MG / IV BOLUS + FLUOROURACIL 1920 MG / IV IN ELASTOMER 46 HOURS
     Route: 042
     Dates: start: 20230405, end: 20230405
  3. IRINOTECAN [Suspect]
     Active Substance: IRINOTECAN
     Indication: Rectal cancer
     Dosage: 144 MG/IV IN 90 MIN
     Route: 042
     Dates: start: 20230405, end: 20230405

REACTIONS (2)
  - Leukopenia [Recovering/Resolving]
  - Escherichia sepsis [Recovering/Resolving]

NARRATIVE: CASE EVENT DATE: 20230411
